FAERS Safety Report 17736660 (Version 3)
Quarter: 2020Q2

REPORT INFORMATION
  Report Type: Spontaneous
  Country: US (occurrence: BR)
  Receive Date: 20200501
  Receipt Date: 20200529
  Transmission Date: 20200714
  Serious: Yes (Hospitalization)
  Sender: FDA-Public Use
  Company Number: BR-BIOMARINAP-BR-2020-129902

PATIENT
  Age: 2 Year
  Sex: Female
  Weight: 14.7 kg

DRUGS (1)
  1. ALDURAZYME [Suspect]
     Active Substance: LARONIDASE
     Indication: MUCOPOLYSACCHARIDOSIS
     Dosage: UNK UNK, QW
     Route: 041
     Dates: start: 20180601

REACTIONS (1)
  - Amygdalotomy [Recovered/Resolved]

NARRATIVE: CASE EVENT DATE: 20190914
